FAERS Safety Report 21044603 (Version 3)
Quarter: 2022Q4

REPORT INFORMATION
  Report Type: Report from Study
  Country: FR (occurrence: FR)
  Receive Date: 20220705
  Receipt Date: 20221019
  Transmission Date: 20230112
  Serious: Yes (Hospitalization)
  Sender: FDA-Public Use
  Company Number: FR-GILEAD-2022-0580281

PATIENT
  Age: 69 Year
  Sex: Female
  Weight: 119 kg

DRUGS (5)
  1. SACITUZUMAB GOVITECAN [Suspect]
     Active Substance: SACITUZUMAB GOVITECAN
     Indication: Triple negative breast cancer
     Dosage: 1200 MG
     Route: 042
     Dates: start: 20220303, end: 20220310
  2. SACITUZUMAB GOVITECAN [Suspect]
     Active Substance: SACITUZUMAB GOVITECAN
     Dosage: 10 MG/KG D1AND D8
     Route: 042
     Dates: start: 20220324, end: 20220331
  3. SACITUZUMAB GOVITECAN [Suspect]
     Active Substance: SACITUZUMAB GOVITECAN
     Dosage: 10 MG/KG D1 AND D8
     Route: 042
     Dates: start: 20220414, end: 20220421
  4. SACITUZUMAB GOVITECAN [Suspect]
     Active Substance: SACITUZUMAB GOVITECAN
     Dosage: 10 MG/KG C4 D1 AND D8
     Route: 042
     Dates: start: 20220505, end: 20220512
  5. SACITUZUMAB GOVITECAN [Suspect]
     Active Substance: SACITUZUMAB GOVITECAN
     Dosage: 7.5 MG/KG  D1 AND D8 (OFF LABEL USE AS THERE WAS MORE THAN 21 DAYS BETWEEN C4D1 AND C5D1
     Route: 042
     Dates: start: 20220527, end: 20220603

REACTIONS (8)
  - General physical condition abnormal [Recovered/Resolved]
  - Dehydration [Recovered/Resolved]
  - Skin lesion [Recovered/Resolved]
  - Muscle spasms [Not Recovered/Not Resolved]
  - Weight decreased [Not Recovered/Not Resolved]
  - Nausea [Not Recovered/Not Resolved]
  - Diarrhoea [Not Recovered/Not Resolved]
  - Inappropriate schedule of product administration [Unknown]

NARRATIVE: CASE EVENT DATE: 20220311
